FAERS Safety Report 11290603 (Version 1)
Quarter: 2015Q3

REPORT INFORMATION
  Report Type: Spontaneous
  Country: US (occurrence: US)
  Receive Date: 20150722
  Receipt Date: 20150722
  Transmission Date: 20151125
  Serious: No
  Sender: FDA-Public Use
  Company Number: US-UNITED THERAPEUTICS-UNT-2015-004727

PATIENT
  Age: 51 Year
  Sex: Female
  Weight: 72.97 kg

DRUGS (2)
  1. ADCIRCA [Concomitant]
     Active Substance: TADALAFIL
     Indication: PRODUCT USED FOR UNKNOWN INDICATION
  2. REMODULIN [Suspect]
     Active Substance: TREPROSTINIL
     Indication: PULMONARY ARTERIAL HYPERTENSION
     Dosage: 0.002 ?G/KG/MIN, CONTINUING
     Route: 058
     Dates: start: 20150420

REACTIONS (8)
  - Flushing [Unknown]
  - Pruritus [Unknown]
  - Dyspnoea [Unknown]
  - Adverse event [Unknown]
  - Infusion site erythema [Unknown]
  - Dermatitis [Unknown]
  - Rubber sensitivity [Unknown]
  - Infusion site pain [Unknown]

NARRATIVE: CASE EVENT DATE: 201504
